FAERS Safety Report 7395530-7 (Version None)
Quarter: 2011Q2

REPORT INFORMATION
  Report Type: 
  Country: None (occurrence: None)
  Receive Date: 20110405
  Receipt Date: 20110331
  Transmission Date: 20111010
  Serious: Yes (Other)
  Sender: FDA-Public Use
  Company Number: GB-PFIZER INC-2011060968

PATIENT
  Age: 68 Year
  Sex: Female

DRUGS (1)
  1. METHYLNALTREXONE BROMIDE [Suspect]
     Dosage: UNK
     Route: 058
     Dates: start: 20110305, end: 20110305

REACTIONS (1)
  - SWOLLEN TONGUE [None]
